FAERS Safety Report 18694252 (Version 2)
Quarter: 2021Q1

REPORT INFORMATION
  Report Type: Spontaneous
  Country: US (occurrence: US)
  Receive Date: 20210104
  Receipt Date: 20210108
  Transmission Date: 20210419
  Serious: Yes (Life-Threatening, Hospitalization, Other)
  Sender: FDA-Public Use
  Company Number: US-PFIZER INC-2020519604

PATIENT
  Age: 59 Year
  Sex: Female

DRUGS (3)
  1. OLARATUMAB [Suspect]
     Active Substance: OLARATUMAB
     Indication: ENDOMETRIAL STROMAL SARCOMA
     Dosage: UNK, CYCLIC
     Dates: start: 201711
  2. DOXORUBICIN HCL [Suspect]
     Active Substance: DOXORUBICIN HYDROCHLORIDE
     Indication: ENDOMETRIAL STROMAL SARCOMA
     Dosage: UNK, CYCLIC
     Dates: start: 201711
  3. CABOZANTINIB [Concomitant]
     Active Substance: CABOZANTINIB
     Dosage: UNK, CYCLIC (REDUCED DOSE)

REACTIONS (1)
  - Pneumothorax [Unknown]

NARRATIVE: CASE EVENT DATE: 201801
